FAERS Safety Report 9529455 (Version 26)
Quarter: 2019Q4

REPORT INFORMATION
  Report Type: Report from Study
  Country: CA (occurrence: CA)
  Receive Date: 20130917
  Receipt Date: 20191112
  Transmission Date: 20200122
  Serious: Yes (Death, Hospitalization)
  Sender: FDA-Public Use
  Company Number: PHHY2012CA045191

PATIENT
  Age: 61 Year
  Sex: Male

DRUGS (15)
  1. SANDOSTATIN LAR DEPOT [Suspect]
     Active Substance: OCTREOTIDE ACETATE
     Dosage: 20 MG, QMO (ONCE A MONTH)
     Route: 030
     Dates: start: 20110712
  2. GASTROLYTE [Concomitant]
     Active Substance: DEXTROSE\ELECTROLYTES NOS
     Indication: PRODUCT USED FOR UNKNOWN INDICATION
     Dosage: 196 G, QD
     Route: 048
  3. SANDOSTATIN LAR DEPOT [Suspect]
     Active Substance: OCTREOTIDE ACETATE
     Dosage: 40 MG, QMO (ONCE A MONTH)
     Route: 030
     Dates: start: 20130403
  4. SANDOSTATIN LAR DEPOT [Suspect]
     Active Substance: OCTREOTIDE ACETATE
     Dosage: 60 MG, QMO
     Route: 030
  5. SANDOSTATIN LAR DEPOT [Suspect]
     Active Substance: OCTREOTIDE ACETATE
     Indication: CARCINOID SYNDROME
     Dosage: 40 MG, QMO (EVERY 4 WEEKS)
     Route: 030
     Dates: start: 20110512
  6. SANDOSTATIN LAR DEPOT [Suspect]
     Active Substance: OCTREOTIDE ACETATE
     Dosage: 40 MG, QMO
     Route: 030
     Dates: start: 20170821
  7. EVEROLIMUS. [Concomitant]
     Active Substance: EVEROLIMUS
     Indication: PRODUCT USED FOR UNKNOWN INDICATION
     Dosage: 10 MG, QD
     Route: 048
  8. SANDOSTATIN LAR DEPOT [Suspect]
     Active Substance: OCTREOTIDE ACETATE
     Dosage: 30 MG, QMO (ONCE A MONTH)
     Route: 030
     Dates: start: 20111128
  9. SANDOSTATIN LAR DEPOT [Suspect]
     Active Substance: OCTREOTIDE ACETATE
     Dosage: 50 MG, QMO
     Route: 030
  10. SODIUM PHOSPHATE [Concomitant]
     Active Substance: SODIUM PHOSPHATE
     Indication: PRODUCT USED FOR UNKNOWN INDICATION
     Dosage: 500 MG, QD
     Route: 048
  11. METOCLOPRAMID [Concomitant]
     Active Substance: METOCLOPRAMIDE
     Indication: PRODUCT USED FOR UNKNOWN INDICATION
     Dosage: (5-10MG Q4H) PRN
     Route: 048
  12. FERROUS FUMARATE [Concomitant]
     Active Substance: FERROUS FUMARATE
     Indication: PRODUCT USED FOR UNKNOWN INDICATION
     Dosage: 300 MG, QD
     Route: 048
  13. SANDOSTATIN LAR DEPOT [Suspect]
     Active Substance: OCTREOTIDE ACETATE
     Dosage: 40 MG, QMO (EVERY 4 WEEKS)
     Route: 030
     Dates: start: 20140410
  14. KCL [Concomitant]
     Active Substance: POTASSIUM CHLORIDE
     Indication: PRODUCT USED FOR UNKNOWN INDICATION
     Dosage: 50 MG, QD
     Route: 048
  15. ONDANSETRON [Concomitant]
     Active Substance: ONDANSETRON
     Indication: PRODUCT USED FOR UNKNOWN INDICATION
     Dosage: 8 MG, Q8H (PRN)
     Route: 048

REACTIONS (16)
  - Flushing [Not Recovered/Not Resolved]
  - Dehydration [Recovered/Resolved]
  - Decreased appetite [Unknown]
  - Dehydration [Recovered/Resolved]
  - Diarrhoea [Not Recovered/Not Resolved]
  - Blood pressure systolic increased [Unknown]
  - Weight decreased [Unknown]
  - Death [Fatal]
  - Dehydration [Recovered/Resolved]
  - Drug ineffective [Unknown]
  - Malaise [Unknown]
  - Fatigue [Recovering/Resolving]
  - Blood pressure diastolic decreased [Unknown]
  - Nausea [Unknown]
  - Vomiting [Unknown]
  - Dehydration [Unknown]

NARRATIVE: CASE EVENT DATE: 20140107
